FAERS Safety Report 5004783-1 (Version None)
Quarter: 2006Q1

REPORT INFORMATION
  Report Type: 
  Country: None (occurrence: None)
  Receive Date: 20060321
  Receipt Date: 20060208
  Transmission Date: 20060701
  Serious: No
  Sender: FDA-Public Use
  Company Number: YPA20050639

PATIENT
  Age: 65 Year
  Sex: Female

DRUGS (8)
  1. VESICARE [Suspect]
     Dosage: SEE IMAGE
     Dates: end: 20050101
  2. VESICARE [Suspect]
     Dosage: SEE IMAGE
     Dates: start: 20050101
  3. STALEVO (CARBIDOPA, ENTACAPONE) [Concomitant]
  4. LODOSYN [Concomitant]
  5. MIDODRIN (MIDODRINE) [Concomitant]
  6. SINEMET (CARBIDOPA) [Concomitant]
  7. FLUDROCORT (FLUDROCORTISONE) [Concomitant]
  8. SALT TABLETS (SODIUM CHLORIDE) [Concomitant]

REACTIONS (2)
  - BALANCE DISORDER [None]
  - DRUG INEFFECTIVE [None]
